FAERS Safety Report 7896975-9 (Version None)
Quarter: 2011Q4

REPORT INFORMATION
  Report Type: 
  Country: None (occurrence: None)
  Receive Date: 20111107
  Receipt Date: 20111105
  Transmission Date: 20120403
  Serious: Yes (Other)
  Sender: FDA-Public Use
  Company Number: US-PFIZER INC-2011270882

PATIENT
  Sex: Male
  Weight: 106.58 kg

DRUGS (6)
  1. CHANTIX [Suspect]
     Dosage: 1 MG, 2X/DAY
     Route: 048
     Dates: start: 20111001, end: 20111029
  2. METFORMIN [Concomitant]
     Dosage: UNK
  3. GLIPIZIDE [Concomitant]
     Dosage: UNK
  4. CHANTIX [Suspect]
     Indication: SMOKING CESSATION THERAPY
     Dosage: 0.5 MG, 1X/DAY
     Route: 048
     Dates: start: 20111016, end: 20111001
  5. FENOFIBRATE [Concomitant]
     Dosage: UNK
  6. LISINOPRIL [Concomitant]
     Indication: RENAL DISORDER
     Dosage: UNK

REACTIONS (5)
  - PERSONALITY CHANGE [None]
  - FEELING ABNORMAL [None]
  - APATHY [None]
  - ANGER [None]
  - DEPRESSED MOOD [None]
